FAERS Safety Report 19031717 (Version 2)
Quarter: 2021Q3

REPORT INFORMATION
  Report Type: Spontaneous
  Country: IN (occurrence: IN)
  Receive Date: 20210319
  Receipt Date: 20210909
  Transmission Date: 20211014
  Serious: Yes (Other)
  Sender: FDA-Public Use
  Company Number: IN-PFIZER INC-2018354036

PATIENT
  Age: 64 Year
  Sex: Female

DRUGS (4)
  1. XGEVA [Concomitant]
     Active Substance: DENOSUMAB
     Dosage: 120 MG (12 WEEKLY (12 WEEKS))
     Route: 058
  2. PALBACE [Suspect]
     Active Substance: PALBOCICLIB
     Indication: BREAST CANCER METASTATIC
     Dosage: 125 MG, 1X/DAY
     Route: 048
     Dates: start: 20171007
  3. FASLODEX [Concomitant]
     Active Substance: FULVESTRANT
     Dosage: UNK
  4. SHELCAL [CALCIUM;COLECALCIFEROL] [Concomitant]
     Active Substance: CALCIUM\CHOLECALCIFEROL
     Dosage: 500 MG, 1X/DAY

REACTIONS (6)
  - Off label use [Unknown]
  - White blood cell count decreased [Unknown]
  - Positron emission tomogram abnormal [Unknown]
  - Product dispensing error [Unknown]
  - Toothache [Unknown]
  - Underdose [Unknown]

NARRATIVE: CASE EVENT DATE: 201809
